FAERS Safety Report 5156947-4 (Version None)
Quarter: 2006Q4

REPORT INFORMATION
  Report Type: 
  Country: None (occurrence: None)
  Receive Date: 20061124
  Receipt Date: 20060913
  Transmission Date: 20070319
  Serious: Yes (Other)
  Sender: FDA-Public Use
  Company Number: FR-ROCHE-463450

PATIENT
  Age: 77 Year
  Sex: Male

DRUGS (2)
  1. PEGASYS [Suspect]
     Indication: HEPATIC CIRRHOSIS
     Route: 058
     Dates: start: 20051105, end: 20060913
  2. COPEGUS [Concomitant]
     Indication: HEPATITIS C
     Dosage: MAINTENANCE TREATMENT.
     Route: 048
     Dates: start: 20051105, end: 20060913

REACTIONS (4)
  - CEREBROVASCULAR ACCIDENT [None]
  - DIPLOPIA [None]
  - LEUKOENCEPHALOPATHY [None]
  - LEUKOPENIA [None]
